FAERS Safety Report 16720458 (Version 1)
Quarter: 2019Q3

REPORT INFORMATION
  Report Type: Spontaneous
  Country: CA (occurrence: CA)
  Receive Date: 20190820
  Receipt Date: 20190820
  Transmission Date: 20191005
  Serious: Yes (Other)
  Sender: FDA-Public Use
  Company Number: CA-ROCHE-2380728

PATIENT
  Age: 61 Year
  Sex: Female

DRUGS (3)
  1. XOLAIR [Suspect]
     Active Substance: OMALIZUMAB
     Indication: ASTHMA
     Route: 058
     Dates: start: 20101124
  2. XOLAIR [Suspect]
     Active Substance: OMALIZUMAB
     Route: 058
     Dates: start: 20180810
  3. XOLAIR [Suspect]
     Active Substance: OMALIZUMAB
     Route: 058
     Dates: start: 20190705

REACTIONS (7)
  - Colitis ulcerative [Unknown]
  - Nasopharyngitis [Unknown]
  - Wheezing [Unknown]
  - Diarrhoea [Unknown]
  - Abdominal pain [Unknown]
  - Pancreatitis [Unknown]
  - Cough [Unknown]

NARRATIVE: CASE EVENT DATE: 2018
